FAERS Safety Report 7791946-5 (Version None)
Quarter: 2011Q4

REPORT INFORMATION
  Report Type: 
  Country: None (occurrence: None)
  Receive Date: 20111003
  Receipt Date: 20110924
  Transmission Date: 20120403
  Serious: Yes (Hospitalization, Other)
  Sender: FDA-Public Use
  Company Number: FR-JNJFOC-20110203785

PATIENT
  Sex: Female

DRUGS (5)
  1. ABILIFY [Concomitant]
     Indication: PRODUCT USED FOR UNKNOWN INDICATION
     Route: 065
  2. RISPERDAL [Suspect]
     Indication: SCHIZOPHRENIA
     Route: 048
  3. CLOPIXOL [Concomitant]
     Indication: PRODUCT USED FOR UNKNOWN INDICATION
     Route: 065
  4. RISPERDAL CONSTA [Suspect]
     Indication: PRODUCT USED FOR UNKNOWN INDICATION
     Route: 030
  5. LOXAPINE HCL [Concomitant]
     Indication: PRODUCT USED FOR UNKNOWN INDICATION
     Route: 065

REACTIONS (8)
  - SUICIDE ATTEMPT [None]
  - MENTAL DISORDER [None]
  - ILL-DEFINED DISORDER [None]
  - WEIGHT INCREASED [None]
  - HOSPITALISATION [None]
  - CONDITION AGGRAVATED [None]
  - INCOHERENT [None]
  - NERVOUS SYSTEM DISORDER [None]
